FAERS Safety Report 20995984 (Version 1)
Quarter: 2022Q2

REPORT INFORMATION
  Report Type: Spontaneous
  Country: US (occurrence: US)
  Receive Date: 20220623
  Receipt Date: 20220623
  Transmission Date: 20220721
  Serious: Yes (Death, Other)
  Sender: FDA-Public Use
  Company Number: US-PURDUE-USA-2020-0224634

PATIENT
  Age: 30 Year
  Sex: Female

DRUGS (1)
  1. HYDROCODONE BITARTRATE AND ACETAMINOPHEN [Suspect]
     Active Substance: ACETAMINOPHEN\HYDROCODONE BITARTRATE
     Indication: Product used for unknown indication
     Dosage: 10-325MG
     Route: 048

REACTIONS (3)
  - Overdose [Fatal]
  - Drug abuse [Fatal]
  - Drug dependence [Unknown]

NARRATIVE: CASE EVENT DATE: 20200331
